FAERS Safety Report 9409291 (Version 3)
Quarter: 2013Q3

REPORT INFORMATION
  Report Type: Spontaneous
  Country: US (occurrence: None)
  Receive Date: 20130408
  Receipt Date: 20130815
  Transmission Date: 20140515
  Serious: Yes (Other)
  Sender: FDA-Public Use
  Company Number: ADR-2012-01118

PATIENT
  Sex: Male

DRUGS (4)
  1. BACLOFEN [Suspect]
     Indication: POST LAMINECTOMY SYNDROME
  2. BACLOFEN [Suspect]
     Indication: PAIN
  3. CLONIDINE [Concomitant]
  4. DILAUDID (HYDROMORPHONE) [Concomitant]

REACTIONS (22)
  - Hallucination, visual [None]
  - Skin burning sensation [None]
  - Muscle spasms [None]
  - Pain [None]
  - Pain in extremity [None]
  - Gait disturbance [None]
  - Pyrexia [None]
  - Confusional state [None]
  - Fall [None]
  - Device dislocation [None]
  - Myocardial infarction [None]
  - Heart rate increased [None]
  - Overdose [None]
  - No therapeutic response [None]
  - Myocardial infarction [None]
  - Unevaluable event [None]
  - Feeling abnormal [None]
  - Muscle spasms [None]
  - Nerve injury [None]
  - Pain in extremity [None]
  - Bone disorder [None]
  - Cervical vertebral fracture [None]
